FAERS Safety Report 7251714-X (Version None)
Quarter: 2011Q1

REPORT INFORMATION
  Report Type: 
  Country: None (occurrence: None)
  Receive Date: 20110128
  Receipt Date: 20110126
  Transmission Date: 20110831
  Serious: Yes (Hospitalization, Other)
  Sender: FDA-Public Use
  Company Number: US-ABBOTT-11P-163-0701071-00

PATIENT
  Sex: Female
  Weight: 91.708 kg

DRUGS (14)
  1. DIAVAN [Concomitant]
     Indication: HYPERTENSION
     Dosage: 320/25 MILLIGRAMS
  2. HUMIRA [Suspect]
     Dates: start: 20110101
  3. LASIX [Concomitant]
     Indication: HYPERTENSION
  4. HUMIRA [Suspect]
     Indication: PSORIASIS
     Dates: start: 20101101, end: 20101101
  5. METFORMIN [Concomitant]
     Indication: DIABETES MELLITUS
  6. COLACE [Concomitant]
     Indication: CONSTIPATION PROPHYLAXIS
  7. HUMIRA [Suspect]
     Indication: PSORIATIC ARTHROPATHY
     Dates: start: 20080101, end: 20100901
  8. LIPITOR [Concomitant]
     Indication: BLOOD CHOLESTEROL INCREASED
  9. MELOXICAM [Concomitant]
     Indication: INFLAMMATION
  10. NOVOLOG [Concomitant]
     Indication: DIABETES MELLITUS
     Route: 058
  11. LEVOTHYROXINE SODIUM [Concomitant]
     Indication: HYPOTHYROIDISM
  12. METOPROLOL [Concomitant]
     Indication: HYPERTENSION
  13. GLIPIZIDE [Concomitant]
     Indication: DIABETES MELLITUS
  14. TRAMADOL HCL [Concomitant]
     Indication: PAIN

REACTIONS (5)
  - DYSPNOEA [None]
  - VAGINAL HAEMORRHAGE [None]
  - ATRIOVENTRICULAR BLOCK [None]
  - UTERINE MASS [None]
  - UTERINE CANCER [None]
